FAERS Safety Report 8611131-4 (Version None)
Quarter: 2012Q3

REPORT INFORMATION
  Report Type: 
  Country: None (occurrence: None)
  Receive Date: 20120806
  Receipt Date: 20120724
  Transmission Date: 20120928
  Serious: Yes (Death, Hospitalization)
  Sender: FDA-Public Use
  Company Number: 0228304

PATIENT
  Age: 24 Year
  Sex: Male

DRUGS (2)
  1. TACHOSIL [Suspect]
     Indication: HAEMORRHAGE
     Dosage: 3 SPONGES IN 2 DAYS
     Dates: start: 20120309, end: 20120310
  2. GENTAMICIN [Suspect]
     Dosage: INTRAVENOUS
     Route: 042
     Dates: start: 20120220, end: 20120315

REACTIONS (22)
  - COAGULATION FACTOR V LEVEL DECREASED [None]
  - PULMONARY ALVEOLAR HAEMORRHAGE [None]
  - CARDIOGENIC SHOCK [None]
  - RENAL FAILURE [None]
  - EAR HAEMORRHAGE [None]
  - CITROBACTER INFECTION [None]
  - ALLOIMMUNISATION [None]
  - HAEMOTHORAX [None]
  - PULMONARY OEDEMA [None]
  - MEDIASTINITIS [None]
  - WOUND [None]
  - KLEBSIELLA INFECTION [None]
  - ANTI FACTOR V ANTIBODY POSITIVE [None]
  - HAEMATOMA [None]
  - PULMONARY HAEMORRHAGE [None]
  - ENTEROCOCCAL SEPSIS [None]
  - LARYNGEAL HAEMORRHAGE [None]
  - LUNG DISORDER [None]
  - TRACHEO-OESOPHAGEAL FISTULA [None]
  - SHOCK HAEMORRHAGIC [None]
  - EPISTAXIS [None]
  - CYTOLYTIC HEPATITIS [None]
